FAERS Safety Report 21815103 (Version 5)
Quarter: 2024Q1

REPORT INFORMATION
  Report Type: Report from Study
  Country: US (occurrence: US)
  Receive Date: 20230104
  Receipt Date: 20240326
  Transmission Date: 20240410
  Serious: Yes (Other)
  Sender: FDA-Public Use
  Company Number: US-ABBVIE-4229098

PATIENT
  Sex: Male

DRUGS (1)
  1. HUMIRA [Suspect]
     Active Substance: ADALIMUMAB
     Indication: Rheumatoid arthritis
     Dosage: FORM STRENGTH 40 MILLIGRAMS?CITRATE FREE
     Route: 058

REACTIONS (9)
  - Rheumatoid arthritis [Unknown]
  - Joint effusion [Unknown]
  - Foot operation [Unknown]
  - Osteoarthritis [Unknown]
  - Arthropathy [Unknown]
  - Musculoskeletal disorder [Unknown]
  - Pain in extremity [Unknown]
  - Peripheral swelling [Unknown]
  - Joint range of motion decreased [Unknown]
